FAERS Safety Report 8593692-7 (Version None)
Quarter: 2012Q3

REPORT INFORMATION
  Report Type: 
  Country: None (occurrence: None)
  Receive Date: 20120814
  Receipt Date: 20120808
  Transmission Date: 20120928
  Serious: Yes (Hospitalization)
  Sender: FDA-Public Use
  Company Number: JP-VERTEX PHARMACEUTICALS INC.-AE-2012-010810

PATIENT
  Age: 54 Year
  Sex: Male

DRUGS (10)
  1. PEG-INTRON [Concomitant]
     Indication: HEPATITIS C
     Route: 058
     Dates: start: 20120210, end: 20120628
  2. ALLOPURINOL [Concomitant]
     Indication: HYPERURICAEMIA
     Route: 048
     Dates: start: 20120308, end: 20120713
  3. URSO 250 [Concomitant]
     Route: 048
     Dates: end: 20120308
  4. TELAVIC [Suspect]
     Route: 048
     Dates: start: 20120308, end: 20120416
  5. REBETOL [Concomitant]
     Route: 048
     Dates: start: 20120221, end: 20120221
  6. REBETOL [Concomitant]
     Route: 048
     Dates: start: 20120225, end: 20120713
  7. TELAVIC [Suspect]
     Indication: HEPATITIS C
     Route: 048
     Dates: start: 20120210, end: 20120307
  8. TELAVIC [Suspect]
     Route: 048
     Dates: start: 20120417, end: 20120503
  9. REBETOL [Concomitant]
     Indication: HEPATITIS C
     Route: 048
     Dates: start: 20120210, end: 20120220
  10. REBETOL [Concomitant]
     Route: 048
     Dates: start: 20120222, end: 20120224

REACTIONS (1)
  - DRUG ERUPTION [None]
